FAERS Safety Report 7718922-2 (Version None)
Quarter: 2011Q3

REPORT INFORMATION
  Report Type: 
  Country: None (occurrence: None)
  Receive Date: 20110830
  Receipt Date: 20110819
  Transmission Date: 20111222
  Serious: Yes (Hospitalization)
  Sender: FDA-Public Use
  Company Number: US-GLAXOSMITHKLINE-A0747153A

PATIENT
  Age: 72 Year
  Sex: Female
  Weight: 65.9 kg

DRUGS (7)
  1. HYDROCHLOROTHIAZIDE [Concomitant]
  2. GLUCOTROL [Concomitant]
  3. GLUCOTROL [Concomitant]
     Dates: start: 20000101
  4. GLUCOPHAGE [Concomitant]
  5. LOPID [Concomitant]
  6. AVANDIA [Suspect]
     Indication: PRODUCT USED FOR UNKNOWN INDICATION
     Dosage: 4MG PER DAY
     Dates: start: 20040101, end: 20070101
  7. GLUCOPHAGE [Concomitant]
     Dates: start: 20000101

REACTIONS (9)
  - FATIGUE [None]
  - CARDIOMEGALY [None]
  - CARDIAC DISORDER [None]
  - ATELECTASIS [None]
  - MYOCARDIAL INFARCTION [None]
  - VISUAL IMPAIRMENT [None]
  - DYSPNOEA [None]
  - DIZZINESS [None]
  - CORONARY ARTERY DISEASE [None]
